FAERS Safety Report 8393821-4 (Version None)
Quarter: 2012Q2

REPORT INFORMATION
  Report Type: 
  Country: None (occurrence: None)
  Receive Date: 20120530
  Receipt Date: 20120523
  Transmission Date: 20120825
  Serious: No
  Sender: FDA-Public Use
  Company Number: US-PFIZER INC-2012125246

PATIENT
  Sex: Female

DRUGS (3)
  1. ADVIL [Suspect]
     Dosage: 200 MG, UNK
     Route: 048
     Dates: start: 20120501
  2. ADVIL [Suspect]
     Indication: PAIN
     Dosage: UNK
     Route: 048
     Dates: end: 20120501
  3. ADVIL [Suspect]
     Indication: HEADACHE

REACTIONS (1)
  - DRUG INEFFECTIVE [None]
